FAERS Safety Report 20176485 (Version 2)
Quarter: 2022Q1

REPORT INFORMATION
  Report Type: Report from Study
  Country: US (occurrence: US)
  Receive Date: 20211213
  Receipt Date: 20220114
  Transmission Date: 20220424
  Serious: Yes (Other)
  Sender: FDA-Public Use
  Company Number: US-HBP-2021US024024

PATIENT
  Sex: Female

DRUGS (2)
  1. VALCHLOR [Suspect]
     Active Substance: MECHLORETHAMINE
     Indication: Cutaneous T-cell lymphoma
     Dosage: UNK, QD
     Route: 061
  2. TRIAMCINOLONE [Suspect]
     Active Substance: TRIAMCINOLONE
     Dosage: UNK, UNKNOWN
     Route: 061

REACTIONS (8)
  - Malignant neoplasm progression [Recovered/Resolved]
  - Application site atrophy [Recovered/Resolved]
  - Application site bruise [Recovered/Resolved]
  - Application site laceration [Recovered/Resolved]
  - Benign neoplasm [Recovered/Resolved]
  - Benign tumour excision [Recovered/Resolved]
  - Melanocytic naevus [Recovered/Resolved]
  - Application site vesicles [Recovered/Resolved]

NARRATIVE: CASE EVENT DATE: 20210101
